FAERS Safety Report 21896672 (Version 1)
Quarter: 2023Q1

REPORT INFORMATION
  Report Type: Spontaneous
  Country: IT (occurrence: IT)
  Receive Date: 20230123
  Receipt Date: 20230123
  Transmission Date: 20230418
  Serious: Yes (Hospitalization)
  Sender: FDA-Public Use
  Company Number: None

PATIENT
  Age: 68 Year
  Sex: Male

DRUGS (2)
  1. DAPTOMYCIN [Suspect]
     Active Substance: DAPTOMYCIN
     Indication: Product used for unknown indication
     Dates: start: 20221108, end: 20221121
  2. MEROPENEM [Concomitant]
     Active Substance: MEROPENEM
     Dates: start: 20221121

REACTIONS (1)
  - Acute respiratory failure [Unknown]

NARRATIVE: CASE EVENT DATE: 20221121
